FAERS Safety Report 4454931-7 (Version None)
Quarter: 2004Q3

REPORT INFORMATION
  Report Type: 
  Country: None (occurrence: None)
  Receive Date: 20040921
  Receipt Date: 20040809
  Transmission Date: 20050211
  Serious: Yes (Hospitalization)
  Sender: FDA-Public Use
  Company Number: DE-ROCHE-377427

PATIENT
  Age: 35 Year
  Sex: Male

DRUGS (3)
  1. ROFERON-A [Suspect]
     Route: 058
     Dates: start: 20020802, end: 20030315
  2. ROFERON-A [Suspect]
     Dosage: THERAPY WAS PAUSED DURING THIS TIMEFRAME FOR ONE APPLICATION DUE TO AN ADVERSE EVENT.
     Route: 058
     Dates: start: 20030615, end: 20031027
  3. PARACETAMOL [Concomitant]

REACTIONS (7)
  - ABDOMINAL DISTENSION [None]
  - ASTHENIA [None]
  - DIZZINESS [None]
  - FATIGUE [None]
  - LIVER FUNCTION TEST ABNORMAL [None]
  - LOSS OF CONSCIOUSNESS [None]
  - NAUSEA [None]
